FAERS Safety Report 5977019-2 (Version None)
Quarter: 2008Q4

REPORT INFORMATION
  Report Type: 
  Country: None (occurrence: None)
  Receive Date: 20081126
  Receipt Date: 20081118
  Transmission Date: 20090506
  Serious: Yes (Other)
  Sender: FDA-Public Use
  Company Number: PAR_02435_2008

PATIENT
  Sex: Female

DRUGS (1)
  1. MEGESTROL ACETATE [Suspect]
     Indication: MALNUTRITION
     Dosage: 400 MG QD ORAL
     Route: 048
     Dates: start: 20080625, end: 20080717

REACTIONS (1)
  - DEEP VEIN THROMBOSIS [None]
